FAERS Safety Report 9249824 (Version 1)
Quarter: 2013Q2

REPORT INFORMATION
  Report Type: Other
  Country: GB (occurrence: GB)
  Receive Date: 20130423
  Receipt Date: 20130423
  Transmission Date: 20140414
  Serious: Yes (Hospitalization)
  Sender: FDA-Public Use
  Company Number: GB-ACTAVIS-2013-07006

PATIENT
  Age: 64 Year
  Sex: Male

DRUGS (6)
  1. IBUPROFEN (UNKNOWN) [Suspect]
     Indication: SCIATICA
     Dosage: 400 MG, TID
     Route: 048
     Dates: start: 20130308
  2. IBUPROFEN (UNKNOWN) [Suspect]
     Dosage: 400 MG, DAILY
     Route: 048
     Dates: end: 20130312
  3. ASPIRIN (UNKNOWN) [Suspect]
     Indication: CARDIOVASCULAR EVENT PROPHYLAXIS
     Dosage: 75 MG, DAILY
     Route: 048
     Dates: end: 20130314
  4. ACETAMINOPHEN-CODEINE PHOSPHATE (UNKNOWN) (ACETAMINOPHE, CODEINE PHOSPHATE) UNK, UNKUNK [Suspect]
     Indication: SCIATICA
     Dosage: 2 DF, QID
     Route: 065
  5. PERINDOPRIL ERBUMINE [Concomitant]
     Indication: PRODUCT USED FOR UNKNOWN INDICATION
     Dosage: 4 MG, DAILY
     Route: 065
  6. BENDROFLUMETHIAZIDE [Concomitant]
     Indication: PRODUCT USED FOR UNKNOWN INDICATION
     Dosage: 2.5 MG, DAILY
     Route: 065

REACTIONS (6)
  - Upper gastrointestinal haemorrhage [Unknown]
  - Nausea [Unknown]
  - Vomiting [Unknown]
  - Melaena [Unknown]
  - Dizziness [Unknown]
  - Lethargy [Unknown]
